FAERS Safety Report 17749758 (Version 1)
Quarter: 2020Q2

REPORT INFORMATION
  Report Type: Spontaneous
  Country: CN (occurrence: CN)
  Receive Date: 20200506
  Receipt Date: 20200506
  Transmission Date: 20200714
  Serious: Yes (Hospitalization)
  Sender: FDA-Public Use
  Company Number: CN-GLAXOSMITHKLINE-CN2020APC075172

PATIENT
  Sex: Male

DRUGS (2)
  1. SERETIDE [Suspect]
     Active Substance: FLUTICASONE PROPIONATE\SALMETEROL XINAFOATE
     Indication: DYSPNOEA
  2. SERETIDE [Suspect]
     Active Substance: FLUTICASONE PROPIONATE\SALMETEROL XINAFOATE
     Indication: ASTHMA
     Dosage: UNK (60 INHALATIONS)
     Route: 055

REACTIONS (4)
  - Drug ineffective [Unknown]
  - Underdose [Unknown]
  - Inappropriate schedule of product administration [Not Recovered/Not Resolved]
  - Hospitalisation [Unknown]
